FAERS Safety Report 15628652 (Version 2)
Quarter: 2018Q4

REPORT INFORMATION
  Report Type: Spontaneous
  Country: US (occurrence: US)
  Receive Date: 20181116
  Receipt Date: 20181214
  Transmission Date: 20190205
  Serious: No
  Sender: FDA-Public Use
  Company Number: US-B.I. PHARMACEUTICALS,INC./RIDGEFIELD-2018-BI-055770

PATIENT
  Sex: Male

DRUGS (1)
  1. SPIRIVA [Suspect]
     Active Substance: TIOTROPIUM BROMIDE MONOHYDRATE
     Indication: CHRONIC OBSTRUCTIVE PULMONARY DISEASE
     Dosage: ONCE DAILY; STRENGTH: 18 MCG; FORM: CAPSULE? ADMINISTRATION CORRECT? NO ?ACTION DOSE NOT CHANGED
     Route: 055
     Dates: start: 2014

REACTIONS (2)
  - Medication error [Unknown]
  - Product quality issue [Unknown]
